FAERS Safety Report 11636518 (Version 2)
Quarter: 2015Q4

REPORT INFORMATION
  Report Type: Report from Study
  Country: US (occurrence: US)
  Receive Date: 20151016
  Receipt Date: 20151123
  Transmission Date: 20160304
  Serious: Yes (Hospitalization, Other)
  Sender: FDA-Public Use
  Company Number: US-BIOGENIDEC-2015BI138965

PATIENT
  Age: 56 Year
  Sex: Male

DRUGS (11)
  1. ASPIRIN. [Concomitant]
     Active Substance: ASPIRIN
  2. TECFIDERA [Suspect]
     Active Substance: DIMETHYL FUMARATE
     Indication: MULTIPLE SCLEROSIS
     Route: 048
     Dates: start: 20130814
  3. NICOTINE. [Concomitant]
     Active Substance: NICOTINE
  4. NICODERM CQ [Concomitant]
     Active Substance: NICOTINE
  5. CEFTIN [Concomitant]
     Active Substance: CEFUROXIME AXETIL
  6. FLOMAX [Concomitant]
     Active Substance: TAMSULOSIN HYDROCHLORIDE
  7. VENTOLIN HFA [Concomitant]
     Active Substance: ALBUTEROL SULFATE
  8. TYLENOL [Concomitant]
     Active Substance: ACETAMINOPHEN
  9. LASIX [Concomitant]
     Active Substance: FUROSEMIDE
  10. XARELTO [Concomitant]
     Active Substance: RIVAROXABAN
  11. GUAIFENESIN. [Concomitant]
     Active Substance: GUAIFENESIN

REACTIONS (12)
  - Transient ischaemic attack [Unknown]
  - Depression [Not Recovered/Not Resolved]
  - Decubitus ulcer [Not Recovered/Not Resolved]
  - Musculoskeletal disorder [Not Recovered/Not Resolved]
  - Peripheral swelling [Not Recovered/Not Resolved]
  - Decreased interest [Unknown]
  - Generalised oedema [Not Recovered/Not Resolved]
  - Bladder dysfunction [Unknown]
  - Pneumonia [Not Recovered/Not Resolved]
  - Self esteem decreased [Not Recovered/Not Resolved]
  - Thrombosis [Unknown]
  - Fall [Not Recovered/Not Resolved]

NARRATIVE: CASE EVENT DATE: 201509
